FAERS Safety Report 5964438-3 (Version None)
Quarter: 2008Q4

REPORT INFORMATION
  Report Type: 
  Country: None (occurrence: None)
  Receive Date: 20081124
  Receipt Date: 20081124
  Transmission Date: 20090506
  Serious: Yes (Life-Threatening)
  Sender: FDA-Public Use
  Company Number: None

PATIENT
  Age: 65 Year
  Sex: Female

DRUGS (2)
  1. INSULIN ASPART 100 UNITS/ML NOVONORDISK [Suspect]
     Indication: DIABETES MELLITUS
     Dosage: SLIDING SCALE WITH MEALS SQ
     Route: 058
  2. INSULIN GLARGINE LILY [Suspect]
     Dosage: 24 UNTIS DAILY SQ
     Route: 058

REACTIONS (5)
  - BLOOD GLUCOSE INCREASED [None]
  - HYPOGLYCAEMIA [None]
  - INCORRECT DOSE ADMINISTERED [None]
  - MEDICATION ERROR [None]
  - SUBDURAL HAEMATOMA [None]
